FAERS Safety Report 12660372 (Version 1)
Quarter: 2016Q3

REPORT INFORMATION
  Report Type: Spontaneous
  Country: US (occurrence: US)
  Receive Date: 20160817
  Receipt Date: 20160817
  Transmission Date: 20161109
  Serious: Yes (Hospitalization)
  Sender: FDA-Public Use
  Company Number: PHEH2016US020661

PATIENT
  Age: 47 Year
  Sex: Male

DRUGS (1)
  1. PROMACTA [Suspect]
     Active Substance: ELTROMBOPAG OLAMINE
     Indication: WHITE BLOOD CELL COUNT DECREASED
     Dosage: 25 MG, QD
     Route: 048
     Dates: start: 201603

REACTIONS (2)
  - Large intestine perforation [Unknown]
  - Product use issue [Unknown]

NARRATIVE: CASE EVENT DATE: 201603
